FAERS Safety Report 6430216-4 (Version None)
Quarter: 2009Q4

REPORT INFORMATION
  Report Type: 
  Country: None (occurrence: None)
  Receive Date: 20091104
  Receipt Date: 20091019
  Transmission Date: 20100525
  Serious: Yes (Other)
  Sender: FDA-Public Use
  Company Number: 2009-4102

PATIENT
  Age: 17 Year
  Sex: Male
  Weight: 55 kg

DRUGS (6)
  1. INCRELEX [Suspect]
     Indication: GROWTH HORMONE DEFICIENCY
     Dosage: 60 UNITS (60 UNITS,1 IN 1 D),SUBCUTANEOUS ; 60 UNITS (30 UNITS,2 IN 1 D),SUBCUTANEOUS
     Route: 058
     Dates: start: 20080801
  2. INCRELEX [Suspect]
     Indication: GROWTH HORMONE DEFICIENCY
     Dosage: 60 UNITS (60 UNITS,1 IN 1 D),SUBCUTANEOUS ; 60 UNITS (30 UNITS,2 IN 1 D),SUBCUTANEOUS
     Route: 058
     Dates: start: 20080801
  3. ZOLOFT [Concomitant]
  4. SEROQUEL [Concomitant]
  5. PERIACTIN [Concomitant]
  6. FLONASE [Concomitant]

REACTIONS (2)
  - DYSPLASTIC NAEVUS SYNDROME [None]
  - MELANOCYTIC NAEVUS [None]
